FAERS Safety Report 7158982-3 (Version None)
Quarter: 2010Q4

REPORT INFORMATION
  Report Type: 
  Country: None (occurrence: None)
  Receive Date: 20101130
  Receipt Date: 20101116
  Transmission Date: 20110411
  Serious: Yes (Disabling)
  Sender: FDA-Public Use
  Company Number: 2010MA004651

PATIENT
  Age: 36 Year
  Sex: Male

DRUGS (7)
  1. TRAMADOL HYDROCHLORIDE [Suspect]
  2. DULOXETINE HYDROCHLORIDE [Suspect]
     Indication: TRIGEMINAL NEURALGIA
     Dosage: 60 MG;PO
     Route: 048
     Dates: start: 20101006, end: 20101009
  3. INSULIN [Concomitant]
  4. SIMVASTATIN [Concomitant]
  5. CELECOXIB [Concomitant]
  6. AMITRIPTYLINE HCL [Concomitant]
  7. PREV MEDS [Concomitant]

REACTIONS (6)
  - BLADDER NECK OBSTRUCTION [None]
  - BLADDER OBSTRUCTION [None]
  - DISCOMFORT [None]
  - DRUG INTERACTION [None]
  - EMOTIONAL DISTRESS [None]
  - SEROTONIN SYNDROME [None]
